FAERS Safety Report 18165693 (Version 1)
Quarter: 2020Q3

REPORT INFORMATION
  Report Type: Spontaneous
  Country: CO (occurrence: CO)
  Receive Date: 20200818
  Receipt Date: 20200818
  Transmission Date: 20201103
  Serious: Yes (Hospitalization)
  Sender: FDA-Public Use
  Company Number: CO-PFIZER INC-2020318798

PATIENT
  Age: 63 Year
  Sex: Female

DRUGS (1)
  1. REAMPLA [Suspect]
     Active Substance: PALBOCICLIB
     Dosage: 100 MG
     Route: 048
     Dates: start: 2019, end: 20200813

REACTIONS (3)
  - Decreased immune responsiveness [Unknown]
  - Haemoglobin decreased [Unknown]
  - Blood count abnormal [Unknown]

NARRATIVE: CASE EVENT DATE: 20200611
